FAERS Safety Report 16546312 (Version 1)
Quarter: 2019Q3

REPORT INFORMATION
  Report Type: Report from Study
  Country: None (occurrence: BR)
  Receive Date: 20190709
  Receipt Date: 20190709
  Transmission Date: 20191004
  Serious: Yes (Hospitalization, Other)
  Sender: FDA-Public Use
  Company Number: BR-ABBVIE-19K-020-2739870-00

PATIENT
  Age: 67 Year
  Sex: Female
  Weight: 46 kg

DRUGS (1)
  1. HUMIRA [Suspect]
     Active Substance: ADALIMUMAB
     Indication: RHEUMATOID ARTHRITIS
     Route: 058
     Dates: start: 20180503, end: 201901

REACTIONS (8)
  - Weight decreased [Unknown]
  - Pneumonia [Unknown]
  - Post procedural discharge [Unknown]
  - Arthralgia [Recovering/Resolving]
  - Synovial cyst [Recovering/Resolving]
  - Arthritis infective [Unknown]
  - Syncope [Unknown]
  - Bone tuberculosis [Unknown]

NARRATIVE: CASE EVENT DATE: 2019
